FAERS Safety Report 6033426-3 (Version None)
Quarter: 2009Q1

REPORT INFORMATION
  Report Type: 
  Country: None (occurrence: None)
  Receive Date: 20090109
  Receipt Date: 20081229
  Transmission Date: 20090719
  Serious: Yes (Other)
  Sender: FDA-Public Use
  Company Number: US-B.I. PHARMACEUTICALS,INC./RIDGEFIELD-2008-DE-07942GD

PATIENT
  Age: 40 Year
  Sex: Male

DRUGS (17)
  1. NEVIRAPINE [Suspect]
     Indication: HIV INFECTION
  2. NEVIRAPINE [Suspect]
     Indication: ACQUIRED IMMUNODEFICIENCY SYNDROME
  3. DIDANOSINE [Suspect]
     Indication: HIV INFECTION
  4. DIDANOSINE [Suspect]
     Indication: ACQUIRED IMMUNODEFICIENCY SYNDROME
  5. EMTRICITABINE [Concomitant]
     Indication: HIV INFECTION
  6. LAMIVUDINE [Concomitant]
     Indication: HIV INFECTION
  7. ZIDOVUDINE [Concomitant]
     Indication: HIV INFECTION
  8. STAVUDINE [Concomitant]
     Indication: HIV INFECTION
  9. TENOFOVIR FUMARATE [Concomitant]
     Indication: HIV INFECTION
  10. ATAZANAVIR [Concomitant]
     Indication: HIV INFECTION
  11. RITONAVIR [Concomitant]
     Indication: HIV INFECTION
  12. LOPINAVIR [Concomitant]
     Indication: HIV INFECTION
  13. SAQUINAVIR [Concomitant]
     Indication: HIV INFECTION
  14. DARUNAVIR [Concomitant]
     Indication: HIV INFECTION
  15. AMPRENAVIR [Concomitant]
     Indication: HIV INFECTION
  16. EFAVIRENZ [Concomitant]
     Indication: HIV INFECTION
  17. DELAVIRDINE MESYLATE [Concomitant]
     Indication: HIV INFECTION

REACTIONS (3)
  - HEPATIC STEATOSIS [None]
  - LIPODYSTROPHY ACQUIRED [None]
  - LIVER FUNCTION TEST ABNORMAL [None]
